FAERS Safety Report 6195707-2 (Version None)
Quarter: 2009Q2

REPORT INFORMATION
  Report Type: 
  Country: None (occurrence: None)
  Receive Date: 20090520
  Receipt Date: 20080529
  Transmission Date: 20091009
  Serious: Yes (Hospitalization)
  Sender: FDA-Public Use
  Company Number: US-ASTRAZENECA-2007UW01962

PATIENT
  Age: 4556 Day
  Sex: Female
  Weight: 64 kg

DRUGS (16)
  1. SEROQUEL [Suspect]
     Indication: SCHIZOPHRENIA, PARANOID TYPE
     Route: 048
     Dates: start: 19970601
  2. RISPERDAL [Concomitant]
     Dates: start: 19950101
  3. LITHIUM CITRATE [Concomitant]
     Route: 048
  4. TOPAMAX [Concomitant]
     Route: 048
  5. MULTI-VITAMIN [Concomitant]
     Route: 065
  6. LITHIUM CARBONATE [Concomitant]
     Dosage: 300-600 MG
     Route: 048
  7. EFFEXOR [Concomitant]
     Dosage: 37.5-75 MG
     Route: 048
  8. PHISOHEX [Concomitant]
     Route: 065
  9. ULTRAM [Concomitant]
     Route: 065
  10. IBUPROFEN [Concomitant]
     Dosage: 200 MG EVERY 4-6 HOURS
     Route: 048
  11. TYLENOL [Concomitant]
     Indication: PAIN
     Dosage: 325 MG EVERY 4-6 HOURS
     Route: 048
  12. TYLENOL [Concomitant]
     Indication: PYREXIA
     Dosage: 325 MG EVERY 4-6 HOURS
     Route: 048
  13. PHENERGAN [Concomitant]
     Indication: PAIN
     Route: 054
  14. PHENERGAN [Concomitant]
     Indication: PYREXIA
     Route: 054
  15. BENADRYL [Concomitant]
     Indication: RASH
     Dosage: 25 MG EVERY 4-6 HOURS
     Route: 048
  16. BENADRYL [Concomitant]
     Indication: PRURITUS
     Dosage: 25 MG EVERY 4-6 HOURS
     Route: 048

REACTIONS (4)
  - DIABETES MELLITUS [None]
  - MAJOR DEPRESSION [None]
  - ORAL SURGERY [None]
  - SUBSTANCE ABUSE [None]
